FAERS Safety Report 9889182 (Version 2)
Quarter: 2014Q1

REPORT INFORMATION
  Report Type: Report from Study
  Country: US (occurrence: US)
  Receive Date: 20140211
  Receipt Date: 20140319
  Transmission Date: 20141002
  Serious: Yes (Hospitalization)
  Sender: FDA-Public Use
  Company Number: US-US-EMD SERONO, INC.-7268082

PATIENT
  Sex: Female

DRUGS (2)
  1. REBIF [Suspect]
     Indication: PRODUCT USED FOR UNKNOWN INDICATION
     Route: 058
     Dates: start: 20021022, end: 20110204
  2. REBIF [Suspect]
     Route: 058
     Dates: start: 20140203

REACTIONS (1)
  - Arthropathy [Unknown]
